FAERS Safety Report 11795652 (Version 1)
Quarter: 2015Q4

REPORT INFORMATION
  Report Type: Spontaneous
  Country: US (occurrence: US)
  Receive Date: 20151202
  Receipt Date: 20151202
  Transmission Date: 20160305
  Serious: No
  Sender: FDA-Public Use
  Company Number: GXBR2015US000560

PATIENT
  Sex: Female

DRUGS (1)
  1. AZITHROMYCIN [Suspect]
     Active Substance: AZITHROMYCIN ANHYDROUS
     Indication: PRODUCT USED FOR UNKNOWN INDICATION
     Dosage: 250 MG, UNK
     Route: 065
     Dates: start: 20150113

REACTIONS (8)
  - Throat irritation [Recovering/Resolving]
  - Ear pain [Recovering/Resolving]
  - Insomnia [Recovering/Resolving]
  - Palpitations [Recovering/Resolving]
  - Myalgia [Recovering/Resolving]
  - Anxiety [Recovering/Resolving]
  - Chest pain [Recovering/Resolving]
  - Headache [Recovering/Resolving]
